FAERS Safety Report 4535877-2 (Version None)
Quarter: 2004Q4

REPORT INFORMATION
  Report Type: 
  Country: None (occurrence: None)
  Receive Date: 20041223
  Receipt Date: 20041213
  Transmission Date: 20050328
  Serious: Yes (Other)
  Sender: FDA-Public Use
  Company Number: PHEH2004US13241

PATIENT
  Age: 60 Year
  Sex: Female

DRUGS (15)
  1. ZELNORM [Suspect]
     Indication: IRRITABLE BOWEL SYNDROME
     Dosage: 6 MG, BID
     Dates: start: 20041204, end: 20041211
  2. SYNTHROID [Concomitant]
  3. ATIVAN [Concomitant]
  4. CLONIDINE HCL [Concomitant]
  5. PROZAC [Concomitant]
  6. ECOTRIN [Concomitant]
  7. CALCITRIOL [Concomitant]
  8. DIPHENHYDRAMINE HYDROCHLORIDE [Concomitant]
  9. VICODIN [Concomitant]
  10. VITAMIN CAP [Concomitant]
  11. THIAMINE HCL [Concomitant]
  12. CALCIUM CARBONATE [Concomitant]
  13. NEURONTIN [Concomitant]
  14. CELLCEPT [Concomitant]
  15. GENGRAF [Concomitant]

REACTIONS (1)
  - BLOOD CREATININE INCREASED [None]
